FAERS Safety Report 5315434-0 (Version None)
Quarter: 2007Q2

REPORT INFORMATION
  Report Type: 
  Country: None (occurrence: None)
  Receive Date: 20070503
  Receipt Date: 20070419
  Transmission Date: 20071010
  Serious: Yes (Other)
  Sender: FDA-Public Use
  Company Number: PHBS2007IT07308

PATIENT
  Age: 54 Year
  Sex: Female

DRUGS (2)
  1. VALPRESSION [Suspect]
     Dosage: 160 MG/DAY
     Route: 048
     Dates: end: 20070324
  2. EUTIROX [Concomitant]

REACTIONS (2)
  - CHEST DISCOMFORT [None]
  - DEPRESSION [None]
